FAERS Safety Report 17477502 (Version 1)
Quarter: 2020Q1

REPORT INFORMATION
  Report Type: Spontaneous
  Country: US (occurrence: US)
  Receive Date: 20200228
  Receipt Date: 20200228
  Transmission Date: 20200409
  Serious: No
  Sender: FDA-Public Use
  Company Number: US-SMITH AND NEPHEW, INC-2019SMT00032

PATIENT
  Age: 77 Year
  Sex: Female
  Weight: 78.91 kg

DRUGS (5)
  1. UNSPECIFIED ALLERGY MEDICATIONS [Concomitant]
  2. COLLAGENASE SANTYL [Suspect]
     Active Substance: COLLAGENASE CLOSTRIDIUM HISTOLYTICUM
     Indication: WOUND
     Dosage: 1 DOSAGE UNITS, 3X/WEEK (M,W,F)
     Route: 061
     Dates: start: 20190405
  3. UNSPECIFIED A FIB MEDICATIONS [Concomitant]
  4. UNSPECIFIED ASTHMA MEDICATIONS [Concomitant]
  5. MUPIROCIN. [Concomitant]
     Active Substance: MUPIROCIN
     Dosage: UNK
     Dates: start: 20190405, end: 20190414

REACTIONS (2)
  - Peripheral swelling [Not Recovered/Not Resolved]
  - Drug ineffective for unapproved indication [Not Recovered/Not Resolved]

NARRATIVE: CASE EVENT DATE: 201904
